FAERS Safety Report 4474163-6 (Version None)
Quarter: 2004Q4

REPORT INFORMATION
  Report Type: 
  Country: None (occurrence: None)
  Receive Date: 20041014
  Receipt Date: 20041004
  Transmission Date: 20050328
  Serious: Yes (Hospitalization)
  Sender: FDA-Public Use
  Company Number: US-BRISTOL-MYERS SQUIBB COMPANY-12721320

PATIENT
  Age: 13 Year
  Sex: Female
  Weight: 42 kg

DRUGS (15)
  1. ETOPOSIDE [Suspect]
     Indication: SARCOMA
     Route: 042
     Dates: start: 20040928, end: 20040928
  2. CEFAZOLIN [Concomitant]
  3. FENTANYL [Concomitant]
  4. PROPOFOL [Concomitant]
  5. ONDANSETRON [Concomitant]
  6. BENADRYL [Concomitant]
  7. VALACYCLOVIR HCL [Concomitant]
  8. PENICILLIN [Concomitant]
  9. IFOSFAMIDE [Concomitant]
  10. PENTAMIDINE [Concomitant]
  11. DEXAMETHASONE [Concomitant]
  12. MESNA [Concomitant]
  13. FLUCONAZOLE [Concomitant]
  14. CARBOPLATIN [Concomitant]
  15. CODEINE [Concomitant]

REACTIONS (1)
  - PANCREATITIS [None]
